FAERS Safety Report 21252332 (Version 18)
Quarter: 2024Q2

REPORT INFORMATION
  Report Type: Report from Study
  Country: CO (occurrence: CO)
  Receive Date: 20220825
  Receipt Date: 20240627
  Transmission Date: 20240716
  Serious: Yes (Disabling, Other)
  Sender: FDA-Public Use
  Company Number: CO-TAKEDA-2022TUS037167

PATIENT
  Age: 38 Year
  Sex: Female
  Weight: 70 kg

DRUGS (3)
  1. VEDOLIZUMAB [Suspect]
     Active Substance: VEDOLIZUMAB
     Indication: Colitis ulcerative
     Dosage: 300 MILLIGRAM
     Route: 042
     Dates: start: 20220429
  2. VALSARTAN [Concomitant]
     Active Substance: VALSARTAN
     Dosage: UNK
  3. VERAPAMIL [Concomitant]
     Active Substance: VERAPAMIL HYDROCHLORIDE
     Dosage: UNK

REACTIONS (27)
  - Breast cancer female [Recovering/Resolving]
  - Rectal haemorrhage [Recovering/Resolving]
  - Nephrolithiasis [Recovering/Resolving]
  - Pneumonia [Recovering/Resolving]
  - Herpes zoster [Recovering/Resolving]
  - Back injury [Recovering/Resolving]
  - Joint injury [Recovering/Resolving]
  - Limb injury [Recovering/Resolving]
  - Off label use [Unknown]
  - Dysaesthesia [Recovered/Resolved]
  - Product dose omission issue [Unknown]
  - Paraesthesia [Recovered/Resolved]
  - Inappropriate schedule of product administration [Unknown]
  - Mental disorder [Recovering/Resolving]
  - Depression [Recovering/Resolving]
  - Decreased immune responsiveness [Unknown]
  - Pain [Recovering/Resolving]
  - Malaise [Recovering/Resolving]
  - Respiratory tract congestion [Recovering/Resolving]
  - Frequent bowel movements [Recovering/Resolving]
  - Urinary tract infection [Recovering/Resolving]
  - Abdominal pain [Recovering/Resolving]
  - Decreased appetite [Recovering/Resolving]
  - Headache [Recovered/Resolved]
  - Cough [Recovering/Resolving]
  - Pyrexia [Recovering/Resolving]
  - Oropharyngeal pain [Recovering/Resolving]

NARRATIVE: CASE EVENT DATE: 20220820
